FAERS Safety Report 10794250 (Version 10)
Quarter: 2020Q1

REPORT INFORMATION
  Report Type: Report from Study
  Country: BR (occurrence: BR)
  Receive Date: 20150213
  Receipt Date: 20200228
  Transmission Date: 20200409
  Serious: Yes (Hospitalization, Other)
  Sender: FDA-Public Use
  Company Number: PHHY2015BR016019

PATIENT
  Age: 71 Year
  Sex: Male
  Weight: 93 kg

DRUGS (25)
  1. SANDOSTATIN LAR DEPOT [Suspect]
     Active Substance: OCTREOTIDE ACETATE
     Dosage: 1 DF, UNK (20 MG)
     Route: 065
  2. LOSARTAN POTASSIUM. [Suspect]
     Active Substance: LOSARTAN POTASSIUM
     Indication: BLOOD PRESSURE ABNORMAL
     Dosage: 50 MG, UNK
     Route: 065
  3. ATENOLOL. [Suspect]
     Active Substance: ATENOLOL
     Indication: PRODUCT USED FOR UNKNOWN INDICATION
     Dosage: UNK
     Route: 065
  4. SANDOSTATIN LAR DEPOT [Suspect]
     Active Substance: OCTREOTIDE ACETATE
     Indication: ACROMEGALY
     Dosage: 1 DF, QMO (SINCE MORE THAN 20 YEARS)
     Route: 065
  5. ENALAPRIL [Suspect]
     Active Substance: ENALAPRIL
     Indication: PRODUCT USED FOR UNKNOWN INDICATION
     Dosage: UNK
     Route: 065
  6. SANDOSTATIN LAR DEPOT [Suspect]
     Active Substance: OCTREOTIDE ACETATE
     Dosage: UNK
     Route: 065
     Dates: start: 20191226
  7. METFORMIN [Suspect]
     Active Substance: METFORMIN HYDROCHLORIDE
     Indication: PRODUCT USED FOR UNKNOWN INDICATION
     Dosage: 1 DF, BID (IN THE LUNCH AND AT DINNER)
     Route: 065
     Dates: start: 2000
  8. SIMVASTATIN. [Suspect]
     Active Substance: SIMVASTATIN
     Indication: BLOOD TRIGLYCERIDES INCREASED
  9. PEGVISOMANT [Suspect]
     Active Substance: PEGVISOMANT
     Indication: BRAIN NEOPLASM
     Dosage: 1 DF (APPLICATION), QD
     Route: 065
  10. INSULIN [Concomitant]
     Active Substance: INSULIN NOS
     Indication: DIABETES MELLITUS
     Route: 065
  11. CAPTOPRIL. [Concomitant]
     Active Substance: CAPTOPRIL
     Indication: PRODUCT USED FOR UNKNOWN INDICATION
     Dosage: 25 MG, UNK
     Route: 065
     Dates: start: 2008
  12. CAPTOPRIL. [Concomitant]
     Active Substance: CAPTOPRIL
     Dosage: 50 MG, UNK
     Route: 065
     Dates: start: 2008
  13. SANDOSTATIN LAR DEPOT [Suspect]
     Active Substance: OCTREOTIDE ACETATE
     Indication: BLOOD GROWTH HORMONE ABNORMAL
     Dosage: 2 DF, Q4W (40 MG)
     Route: 065
     Dates: start: 20000101
  14. SANDOSTATIN [Suspect]
     Active Substance: OCTREOTIDE ACETATE
     Indication: ACROMEGALY
     Dosage: UNK UNK, QD
     Route: 065
  15. SANDOSTATIN LAR DEPOT [Suspect]
     Active Substance: OCTREOTIDE ACETATE
     Dosage: 2 DF, EVERY 28 DAYS (2 AMPOULES OF 20 MG)
     Route: 065
  16. CIPROFLOXACIN. [Suspect]
     Active Substance: CIPROFLOXACIN
     Indication: PRODUCT USED FOR UNKNOWN INDICATION
     Dosage: UNK UNK, Q12H
     Route: 065
  17. SIMVASTATIN. [Suspect]
     Active Substance: SIMVASTATIN
     Indication: BLOOD CHOLESTEROL INCREASED
     Dosage: UNK
     Route: 065
  18. OMEPRAZOLE. [Suspect]
     Active Substance: OMEPRAZOLE
     Indication: PH URINE DECREASED
     Dosage: UNK
     Route: 065
  19. SANDOSTATIN LAR DEPOT [Suspect]
     Active Substance: OCTREOTIDE ACETATE
     Dosage: EVERY 28 DAYS
     Route: 065
     Dates: start: 20190727
  20. PURAN [Suspect]
     Active Substance: LEVOTHYROXINE SODIUM
     Indication: THYROID DISORDER
     Dosage: 1 DF, QD, IN THE MORNING
     Route: 065
     Dates: start: 2000
  21. TESTOSTERONE. [Concomitant]
     Active Substance: TESTOSTERONE
     Indication: PRODUCT USED FOR UNKNOWN INDICATION
     Route: 065
  22. GLIMEPIRIDE. [Suspect]
     Active Substance: GLIMEPIRIDE
     Indication: DIABETES MELLITUS
     Dosage: UNK
     Route: 065
  23. RANITIDINE. [Suspect]
     Active Substance: RANITIDINE
     Indication: PH URINE DECREASED
     Dosage: UNK
     Route: 065
  24. NEBIDO [Suspect]
     Active Substance: TESTOSTERONE UNDECANOATE
     Indication: BLOOD TESTOSTERONE ABNORMAL
     Dosage: 1 DF, EVERY 6 WEEKS
     Route: 065
  25. KETOCONAZOLE. [Suspect]
     Active Substance: KETOCONAZOLE
     Indication: PRODUCT USED FOR UNKNOWN INDICATION
     Route: 065

REACTIONS (21)
  - Hepatic cirrhosis [Not Recovered/Not Resolved]
  - Abdominal adhesions [Unknown]
  - Urinary tract infection [Recovered/Resolved]
  - Large intestine polyp [Unknown]
  - Skin papilloma [Unknown]
  - Small intestine carcinoma [Unknown]
  - Cholelithiasis [Unknown]
  - Cystitis [Unknown]
  - Blood cholesterol increased [Unknown]
  - Pancreatic disorder [Unknown]
  - Diarrhoea [Recovering/Resolving]
  - Malaise [Unknown]
  - Hypertension [Unknown]
  - Carcinoid tumour of the gastrointestinal tract [Recovered/Resolved]
  - Diabetes mellitus [Unknown]
  - Anaemia [Recovered/Resolved]
  - Body height decreased [Unknown]
  - Product colour issue [Unknown]
  - Thyroid disorder [Unknown]
  - Memory impairment [Unknown]
  - Blood triglycerides increased [Unknown]

NARRATIVE: CASE EVENT DATE: 2002
